FAERS Safety Report 9186051 (Version 1)
Quarter: 2013Q1

REPORT INFORMATION
  Report Type: Spontaneous
  Country: GB (occurrence: GB)
  Receive Date: 20130325
  Receipt Date: 20130325
  Transmission Date: 20140127
  Serious: Yes (Other)
  Sender: FDA-Public Use
  Company Number: GB-TEVA-393078ISR

PATIENT
  Age: 75 Year
  Sex: Female
  Weight: 66.68 kg

DRUGS (2)
  1. AMITRIPTYLINE [Suspect]
  2. AMITRIPTYLINE [Suspect]
     Dates: end: 201211

REACTIONS (4)
  - Hallucination [Recovered/Resolved]
  - Withdrawal syndrome [Recovering/Resolving]
  - Aphagia [Recovering/Resolving]
  - Malaise [Recovering/Resolving]
